FAERS Safety Report 23576583 (Version 1)
Quarter: 2024Q1

REPORT INFORMATION
  Report Type: Spontaneous
  Country: US (occurrence: None)
  Receive Date: 20240228
  Receipt Date: 20240228
  Transmission Date: 20240409
  Serious: Yes (Hospitalization)
  Sender: FDA-Public Use
  Company Number: None

PATIENT
  Age: 41 Year
  Sex: Female

DRUGS (4)
  1. TEZSPIRE [Suspect]
     Active Substance: TEZEPELUMAB-EKKO
     Indication: Asthma
     Dosage: FREQ: INJECT 210 MG UNDER THE SKIN (SUBCUTANEOUS INJECTION) EVERY 28 DAYS
     Route: 058
  2. SERTRALINE [Concomitant]
  3. SIMPESSE [Concomitant]
     Active Substance: ETHINYL ESTRADIOL\LEVONORGESTREL
  4. SPIRONOLACT [Concomitant]

REACTIONS (3)
  - Asthma [None]
  - Hypertension [None]
  - Pulmonary embolism [None]

NARRATIVE: CASE EVENT DATE: 20240206
